FAERS Safety Report 10182443 (Version 2)
Quarter: 2014Q2

REPORT INFORMATION
  Report Type: Spontaneous
  Country: JP (occurrence: JP)
  Receive Date: 20140520
  Receipt Date: 20140617
  Transmission Date: 20141212
  Serious: Yes (Hospitalization, Other)
  Sender: FDA-Public Use
  Company Number: JP-ASTELLAS-2014JP005859

PATIENT
  Age: 66 Year
  Sex: Female

DRUGS (1)
  1. PROGRAF [Suspect]
     Indication: SYSTEMIC LUPUS ERYTHEMATOSUS
     Route: 048
     Dates: start: 201104, end: 201406

REACTIONS (1)
  - Cardiac valve disease [Not Recovered/Not Resolved]
